FAERS Safety Report 10920752 (Version 1)
Quarter: 2015Q1

REPORT INFORMATION
  Report Type: Spontaneous
  Country: US (occurrence: None)
  Receive Date: 20150313
  Receipt Date: 20150313
  Transmission Date: 20150721
  Serious: Yes (Other)
  Sender: FDA-Public Use
  Company Number: None

PATIENT
  Age: 55 Year
  Sex: Female
  Weight: 63.05 kg

DRUGS (14)
  1. LEVOTHYROXINE [Concomitant]
     Active Substance: LEVOTHYROXINE
  2. NORCO [Concomitant]
     Active Substance: ACETAMINOPHEN\HYDROCODONE BITARTRATE
  3. VITAMIN D [Concomitant]
     Active Substance: CHOLECALCIFEROL
  4. COLACE [Concomitant]
     Active Substance: DOCUSATE SODIUM
  5. DEXAMETHASONE. [Concomitant]
     Active Substance: DEXAMETHASONE
  6. ZOMETA [Concomitant]
     Active Substance: ZOLEDRONIC ACID
  7. VELCADE [Suspect]
     Active Substance: BORTEZOMIB
     Indication: PLASMA CELL MYELOMA
     Dosage: 2.27MG 2XWK FOR 2 WKS GIVEN INTO/UNDER THE SKIN
     Route: 058
     Dates: start: 20141119, end: 20150311
  8. REVLIMID [Suspect]
     Active Substance: LENALIDOMIDE
     Indication: PLASMA CELL MYELOMA
     Dosage: 25 MG Q DAY X 14DAYS TAKEN BY MOUTH
     Route: 048
     Dates: start: 20141119, end: 20150311
  9. ASA [Concomitant]
     Active Substance: ASPIRIN
  10. VIT B-12 [Concomitant]
  11. PROTONIX [Concomitant]
     Active Substance: PANTOPRAZOLE SODIUM
  12. FENTANYL. [Concomitant]
     Active Substance: FENTANYL
  13. ACYCLOVIR. [Concomitant]
     Active Substance: ACYCLOVIR
  14. SOMA [Concomitant]
     Active Substance: CARISOPRODOL

REACTIONS (1)
  - Acute febrile neutrophilic dermatosis [None]

NARRATIVE: CASE EVENT DATE: 20150209
